FAERS Safety Report 5170415-5 (Version None)
Quarter: 2006Q4

REPORT INFORMATION
  Report Type: 
  Country: None (occurrence: None)
  Receive Date: 20061212
  Receipt Date: 20061205
  Transmission Date: 20070319
  Serious: Yes (Other)
  Sender: FDA-Public Use
  Company Number: US-SANOFI-SYNTHELABO-A03200607182

PATIENT
  Age: 49 Year
  Sex: Female

DRUGS (5)
  1. ANZEMET [Concomitant]
     Dosage: UNK
     Route: 065
  2. DECADRON [Concomitant]
     Dosage: UNK
     Route: 065
  3. MAGNESIUM SULFATE [Concomitant]
     Dosage: UNK
     Route: 065
  4. CALCIUM GLUCONATE [Concomitant]
     Dosage: UNK
     Route: 065
  5. ELOXATIN [Suspect]
     Indication: COLON CANCER STAGE III
     Route: 042
     Dates: start: 20060927, end: 20060927

REACTIONS (5)
  - CHILLS [None]
  - HYPOAESTHESIA [None]
  - NEUROPATHY [None]
  - PARAESTHESIA [None]
  - PARALYSIS [None]
